FAERS Safety Report 9978741 (Version 1)
Quarter: 2014Q1

REPORT INFORMATION
  Report Type: Report from Study
  Country: US (occurrence: US)
  Receive Date: 20140306
  Receipt Date: 20140306
  Transmission Date: 20141002
  Serious: No
  Sender: FDA-Public Use
  Company Number: US-ABBVIE-13P-163-1168921-00

PATIENT
  Age: 25 Year
  Sex: Female
  Weight: 59.02 kg

DRUGS (7)
  1. HUMIRA [Suspect]
     Indication: CROHN^S DISEASE
     Dates: start: 20130703, end: 20130703
  2. HUMIRA [Suspect]
     Dates: start: 20130704, end: 20130704
  3. HUMIRA [Suspect]
     Dates: start: 20130715, end: 20130715
  4. HUMIRA [Suspect]
     Dates: start: 20130729, end: 201309
  5. HUMIRA [Suspect]
  6. SERTRALINE [Concomitant]
     Indication: ANXIETY
  7. MULTIVITAMIN [Concomitant]
     Indication: VITAMIN SUPPLEMENTATION

REACTIONS (3)
  - Pain [Recovered/Resolved]
  - Abdominal pain [Not Recovered/Not Resolved]
  - Diarrhoea [Not Recovered/Not Resolved]
